FAERS Safety Report 14274807 (Version 2)
Quarter: 2018Q1

REPORT INFORMATION
  Report Type: Spontaneous
  Country: BE (occurrence: BE)
  Receive Date: 20171212
  Receipt Date: 20180222
  Transmission Date: 20180508
  Serious: Yes (Other)
  Sender: FDA-Public Use
  Company Number: BE-ROCHE-2037567

PATIENT
  Sex: Female

DRUGS (1)
  1. XOLAIR [Suspect]
     Active Substance: OMALIZUMAB
     Indication: CHRONIC SPONTANEOUS URTICARIA
     Dosage: SOLUTION FOR INJECTION
     Route: 058

REACTIONS (6)
  - Depressed mood [Unknown]
  - Cystitis [Unknown]
  - Peripheral swelling [Recovering/Resolving]
  - Urticaria [Recovering/Resolving]
  - Chronic spontaneous urticaria [Recovering/Resolving]
  - Angioedema [Recovering/Resolving]

NARRATIVE: CASE EVENT DATE: 2017
